FAERS Safety Report 8530116-X (Version None)
Quarter: 2012Q3

REPORT INFORMATION
  Report Type: 
  Country: None (occurrence: None)
  Receive Date: 20120723
  Receipt Date: 20120718
  Transmission Date: 20120928
  Serious: Yes (Life-Threatening, Hospitalization)
  Sender: FDA-Public Use
  Company Number: PHHO2012IL007705

PATIENT
  Sex: Female
  Weight: 17 kg

DRUGS (6)
  1. ILARIS [Suspect]
     Indication: JUVENILE ARTHRITIS
     Dosage: 0.45 ML, UNK
     Dates: start: 20100111, end: 20120208
  2. AMOXICILLIN [Concomitant]
  3. IRON [Concomitant]
     Indication: ANAEMIA PROPHYLAXIS
     Dosage: UNK
     Dates: start: 20070601
  4. METHYLPREDNISOLONE [Concomitant]
     Indication: JUVENILE ARTHRITIS
     Dosage: 10 MG/ DAY
     Dates: start: 20100121
  5. METHOTREXATE [Concomitant]
     Indication: JUVENILE ARTHRITIS
     Dosage: UNK
     Dates: end: 20120101
  6. VITAMIN D [Concomitant]
     Dosage: UNK
     Dates: start: 20080707

REACTIONS (6)
  - HISTIOCYTOSIS HAEMATOPHAGIC [None]
  - SEPTIC SHOCK [None]
  - PNEUMONIA [None]
  - DEVICE RELATED SEPSIS [None]
  - GASTROENTERITIS [None]
  - PERITONITIS [None]
